FAERS Safety Report 4772943-0 (Version None)
Quarter: 2005Q3

REPORT INFORMATION
  Report Type: 
  Country: None (occurrence: None)
  Receive Date: 20050916
  Receipt Date: 20050908
  Transmission Date: 20060218
  Serious: Yes (Hospitalization)
  Sender: FDA-Public Use
  Company Number: HQWYE396612SEP05

PATIENT
  Age: 52 Year
  Sex: Female

DRUGS (4)
  1. RAPAMUNE [Suspect]
     Indication: PROPHYLAXIS AGAINST TRANSPLANT REJECTION
     Dosage: 3 MG 1X PER 1 DAY ORAL
     Route: 048
     Dates: start: 20050129
  2. CYCLOSPORINE [Concomitant]
  3. PREDNISONE [Concomitant]
  4. PREDNISONE [Concomitant]

REACTIONS (6)
  - DIABETES MELLITUS [None]
  - HAEMODIALYSIS [None]
  - KIDNEY TRANSPLANT REJECTION [None]
  - POST PROCEDURAL COMPLICATION [None]
  - REFUSAL OF TREATMENT BY PATIENT [None]
  - RENAL FAILURE CHRONIC [None]
